FAERS Safety Report 7482812-3 (Version None)
Quarter: 2011Q2

REPORT INFORMATION
  Report Type: 
  Country: None (occurrence: None)
  Receive Date: 20110516
  Receipt Date: 20110505
  Transmission Date: 20111010
  Serious: Yes (Other)
  Sender: FDA-Public Use
  Company Number: AT-WATSON-2011-06564

PATIENT
  Age: 3 Day
  Sex: Female

DRUGS (3)
  1. PRIMIDONE [Suspect]
     Indication: DRUG EXPOSURE VIA BREAST MILK
     Dosage: MATERNAL DOSE: 187.5MG/DAY
     Route: 063
  2. LEVETIRACETAM [Suspect]
     Indication: DRUG EXPOSURE VIA BREAST MILK
     Dosage: MATERNAL DOSE: 3000 MG/DAY
     Route: 063
  3. PHENOBARBITAL TAB [Suspect]
     Indication: DRUG EXPOSURE VIA BREAST MILK
     Route: 063

REACTIONS (1)
  - DRUG WITHDRAWAL CONVULSIONS [None]
